FAERS Safety Report 15998203 (Version 1)
Quarter: 2019Q1

REPORT INFORMATION
  Report Type: Spontaneous
  Country: IT (occurrence: IT)
  Receive Date: 20190223
  Receipt Date: 20190223
  Transmission Date: 20190418
  Serious: Yes (Other)
  Sender: FDA-Public Use
  Company Number: IT-ACCORD-108529

PATIENT
  Age: 69 Year
  Sex: Male

DRUGS (1)
  1. ENTECAVIR ACCORD [Suspect]
     Active Substance: ENTECAVIR
     Indication: CHRONIC HEPATITIS
     Route: 048

REACTIONS (1)
  - Urticaria [Unknown]

NARRATIVE: CASE EVENT DATE: 20180711
